FAERS Safety Report 8772732 (Version 2)
Quarter: 2013Q1

REPORT INFORMATION
  Report Type: Spontaneous
  Country: US (occurrence: US)
  Receive Date: 20120906
  Receipt Date: 20130115
  Transmission Date: 20140127
  Serious: No
  Sender: FDA-Public Use
  Company Number: US-009507513-1209USA001178

PATIENT
  Sex: Female
  Weight: 61.22 kg

DRUGS (1)
  1. IMPLANON [Suspect]
     Indication: CONTRACEPTION
     Dosage: 1 DF, UNK
     Route: 059
     Dates: start: 20110516

REACTIONS (6)
  - Breast pain [Unknown]
  - Back pain [Unknown]
  - Headache [Unknown]
  - Mood swings [Unknown]
  - Menorrhagia [Unknown]
  - Fatigue [Unknown]
